FAERS Safety Report 9495033 (Version 9)
Quarter: 2014Q4

REPORT INFORMATION
  Report Type: Report from Study
  Country: TR (occurrence: TR)
  Receive Date: 20130903
  Receipt Date: 20141124
  Transmission Date: 20150529
  Serious: Yes (Death)
  Sender: FDA-Public Use
  Company Number: TR-BAYER-2013-105247

PATIENT
  Age: 61 Year
  Sex: Male
  Weight: 84 kg

DRUGS (1)
  1. REGORAFENIB [Suspect]
     Active Substance: REGORAFENIB
     Indication: COLORECTAL CANCER METASTATIC
     Dosage: TOTAL DAILY DOSE 160MG
     Route: 048
     Dates: start: 20130802, end: 20130822

REACTIONS (3)
  - General physical health deterioration [Fatal]
  - Pulmonary embolism [Fatal]
  - Fatigue [Fatal]

NARRATIVE: CASE EVENT DATE: 20130820
